FAERS Safety Report 4261867-3 (Version None)
Quarter: 2004Q1

REPORT INFORMATION
  Report Type: 
  Country: None (occurrence: None)
  Receive Date: 20040102
  Receipt Date: 20031219
  Transmission Date: 20041129
  Serious: Yes (Other)
  Sender: FDA-Public Use
  Company Number: PHBS2003JP14447

PATIENT
  Age: 62 Year
  Sex: Male

DRUGS (8)
  1. DIOVAN [Suspect]
     Indication: HYPERTENSION
     Dosage: 60 MG/DAY
     Route: 048
  2. HEPARIN [Suspect]
     Dates: end: 20031217
  3. CARDENALIN [Concomitant]
     Dosage: 8 MG/DAY
     Route: 048
  4. CALBLOCK [Concomitant]
     Dosage: 16 MG/DAY
     Route: 048
  5. ADALAT CC [Concomitant]
     Dosage: 60 MG/DAY
     Route: 048
  6. ARTIST [Concomitant]
  7. SELOKEN [Concomitant]
  8. PANALDINE [Concomitant]

REACTIONS (1)
  - PLATELET COUNT DECREASED [None]
